FAERS Safety Report 14861902 (Version 1)
Quarter: 2018Q2

REPORT INFORMATION
  Report Type: Spontaneous
  Country: US (occurrence: US)
  Receive Date: 20180508
  Receipt Date: 20180508
  Transmission Date: 20180711
  Serious: No
  Sender: FDA-Public Use
  Company Number: US-GLAXOSMITHKLINE-US2018GSK077016

PATIENT
  Sex: Female

DRUGS (2)
  1. VENTOLIN [Suspect]
     Active Substance: ALBUTEROL SULFATE
     Indication: MULTIPLE ALLERGIES
     Dosage: UNK
     Dates: start: 20140605
  2. FLOVENT [Suspect]
     Active Substance: FLUTICASONE PROPIONATE
     Indication: MULTIPLE ALLERGIES
     Dosage: UNK
     Dates: start: 20140605

REACTIONS (2)
  - Product use in unapproved indication [Unknown]
  - Intentional product misuse [Unknown]
